FAERS Safety Report 21280199 (Version 1)
Quarter: 2022Q3

REPORT INFORMATION
  Report Type: Report from Study
  Country: PH (occurrence: PH)
  Receive Date: 20220901
  Receipt Date: 20220901
  Transmission Date: 20221026
  Serious: Yes (Hospitalization, Other)
  Sender: FDA-Public Use
  Company Number: PH-JNJFOC-20220705240

PATIENT
  Age: 69 Year
  Sex: Male

DRUGS (15)
  1. ABIRATERONE ACETATE [Suspect]
     Active Substance: ABIRATERONE ACETATE
     Indication: Prostate cancer metastatic
     Dosage: 500 MG TO BE TAKEN 1 TABLET 2 TIMES PER DAY
     Route: 048
     Dates: start: 20220704, end: 202207
  2. ABIRATERONE ACETATE [Suspect]
     Active Substance: ABIRATERONE ACETATE
     Dosage: 500 MG TO BE TAKEN 1 TABLET 2 TIMES PER DAY
     Route: 048
     Dates: start: 20220821
  3. PREDNISONE [Concomitant]
     Active Substance: PREDNISONE
     Indication: Product used for unknown indication
     Route: 048
  4. TRAMADOL [Concomitant]
     Active Substance: TRAMADOL
     Indication: Pain
     Route: 048
     Dates: start: 2021, end: 20220731
  5. VITAMINS [Concomitant]
     Active Substance: VITAMINS
     Indication: Product used for unknown indication
     Route: 065
     Dates: start: 202108, end: 202207
  6. BICALUTAMIDE [Concomitant]
     Active Substance: BICALUTAMIDE
     Indication: Prostate cancer
     Route: 065
     Dates: start: 202111, end: 202207
  7. BIOGESIC [PARACETAMOL] [Concomitant]
     Indication: Pain
     Route: 065
     Dates: end: 20220731
  8. GENACOL PLUS [Concomitant]
     Indication: Product used for unknown indication
     Route: 065
     Dates: start: 202104, end: 202207
  9. PREGABALIN [Concomitant]
     Active Substance: PREGABALIN
     Indication: Product used for unknown indication
     Dosage: 1 CAPSULE 2 TIMES A DAY
     Route: 065
  10. SENOKOT [Concomitant]
     Active Substance: SENNOSIDES
     Indication: Product used for unknown indication
     Dosage: 1 TABLET ONCE A DAY, DISSOLVED IN WATER FOR NGT
     Route: 065
  11. DECILONE [DEXAMETHASONE] [Concomitant]
     Indication: Product used for unknown indication
     Dosage: 1 TABLET 3 TIMES A DAY, DISSOLVED IN WATER FOR NGT
     Route: 065
  12. CALMAG [CALCIUM;MAGNESIUM] [Concomitant]
     Indication: Product used for unknown indication
     Dosage: DISSOLVED IN WATER FOR NGT
     Route: 065
  13. ESOMEPRAZOLE [Concomitant]
     Active Substance: ESOMEPRAZOLE
     Indication: Product used for unknown indication
     Dosage: 1 CAPSULE BEFORE FEEDING, DISSOLVED IN WATER FOR NGT
     Route: 065
  14. CEFIXIME [Concomitant]
     Active Substance: CEFIXIME
     Indication: Product used for unknown indication
     Dosage: FOR 7 DAYS, DISSOLVED IN WATER FOR NGT
     Route: 065
     Dates: end: 202208
  15. GLUTAPHOS [Concomitant]
     Indication: Product used for unknown indication
     Dosage: 1 TABLET 2 TIMES A DAY, DISSOLVED IN WATER FOR NGT

REACTIONS (8)
  - Pain [Not Recovered/Not Resolved]
  - Dysstasia [Not Recovered/Not Resolved]
  - Feeding disorder [Recovered/Resolved]
  - Bedridden [Unknown]
  - Pulmonary oedema [Unknown]
  - Taste disorder [Not Recovered/Not Resolved]
  - Off label use [Unknown]
  - Wrong technique in product usage process [Unknown]

NARRATIVE: CASE EVENT DATE: 20220701
